FAERS Safety Report 7483209-2 (Version None)
Quarter: 2011Q2

REPORT INFORMATION
  Report Type: 
  Country: None (occurrence: None)
  Receive Date: 20110516
  Receipt Date: 20110509
  Transmission Date: 20111010
  Serious: Yes (Hospitalization)
  Sender: FDA-Public Use
  Company Number: BR-GENENTECH-318467

PATIENT
  Sex: Female
  Weight: 57 kg

DRUGS (8)
  1. CRESTOR [Concomitant]
     Indication: HYPERTENSION
     Dosage: UNK
  2. COLCHIN [Concomitant]
     Indication: HYPERTENSION
     Dosage: UNK
  3. CONCOR [Concomitant]
     Indication: HYPERTENSION
     Dosage: UNK
     Route: 048
  4. LIVIAL [Concomitant]
     Indication: HYPERTENSION
     Dosage: UNK
  5. PRELONE [Concomitant]
     Indication: PRODUCT USED FOR UNKNOWN INDICATION
     Dosage: UNK
  6. SINGULAIR [Concomitant]
     Indication: PRODUCT USED FOR UNKNOWN INDICATION
     Dosage: UNK
  7. RITUXAN [Suspect]
     Indication: RHEUMATOID ARTHRITIS
     Dosage: UNK
     Route: 065
     Dates: start: 20101207, end: 20101201
  8. IMURAN [Concomitant]
     Indication: HYPERTENSION
     Dosage: UNK

REACTIONS (1)
  - CEREBROVASCULAR ACCIDENT [None]
